FAERS Safety Report 7159844-8 (Version None)
Quarter: 2010Q4

REPORT INFORMATION
  Report Type: 
  Country: None (occurrence: None)
  Receive Date: 20101214
  Receipt Date: 20101007
  Transmission Date: 20110411
  Serious: No
  Sender: FDA-Public Use
  Company Number: US-ASTRAZENECA-2010SE47541

PATIENT
  Age: 82 Year
  Sex: Female

DRUGS (4)
  1. CRESTOR [Suspect]
     Route: 048
     Dates: start: 20091201, end: 20100301
  2. CRESTOR [Suspect]
     Route: 048
     Dates: start: 20100728
  3. SPIRIVA [Concomitant]
  4. LEVOTHYROXINE [Concomitant]

REACTIONS (9)
  - AMNESIA [None]
  - DRUG DOSE OMISSION [None]
  - DRY SKIN [None]
  - DYSPNOEA [None]
  - FALL [None]
  - MALAISE [None]
  - PRURITUS [None]
  - RASH PRURITIC [None]
  - URTICARIA [None]
